FAERS Safety Report 7129053-7 (Version None)
Quarter: 2010Q4

REPORT INFORMATION
  Report Type: 
  Country: None (occurrence: None)
  Receive Date: 20101130
  Receipt Date: 20080222
  Transmission Date: 20110411
  Serious: Yes (Other)
  Sender: FDA-Public Use
  Company Number: AU-ROCHE-741656

PATIENT
  Age: 65 Year
  Sex: Female

DRUGS (1)
  1. HERCEPTIN [Suspect]
     Dosage: FORM: INFUSION
     Route: 065

REACTIONS (3)
  - IMMUNE SYSTEM DISORDER [None]
  - JOINT DEPOSIT [None]
  - OEDEMA PERIPHERAL [None]
